FAERS Safety Report 16036048 (Version 1)
Quarter: 2019Q1

REPORT INFORMATION
  Report Type: Spontaneous
  Country: IN (occurrence: IN)
  Receive Date: 20190305
  Receipt Date: 20190305
  Transmission Date: 20190418
  Serious: Yes (Death, Other)
  Sender: FDA-Public Use
  Company Number: IN-EPIC PHARMA LLC-2019EPC00051

PATIENT
  Age: 28 Year
  Sex: Male

DRUGS (6)
  1. POTASSIUM CHLORIDE. [Suspect]
     Active Substance: POTASSIUM CHLORIDE
     Indication: HYPOKALAEMIA
     Dosage: 10 MMOL, CONTINUOUS/HR
     Route: 042
  2. NORADRENALINE [Concomitant]
     Active Substance: NOREPINEPHRINE
     Dosage: UNK
     Route: 065
  3. POTASSIUM CHLORIDE. [Suspect]
     Active Substance: POTASSIUM CHLORIDE
     Dosage: UNK
  4. ANTIBIOTICS [Concomitant]
     Active Substance: UNSPECIFIED INGREDIENT
     Route: 042
  5. FLUIDS [Concomitant]
     Active Substance: UNSPECIFIED INGREDIENT
     Route: 042
  6. POTASSIUM CHLORIDE. [Suspect]
     Active Substance: POTASSIUM CHLORIDE
     Dosage: 40 MMOL EVERY 8 HOURS

REACTIONS (5)
  - Accidental overdose [Fatal]
  - Cardiac arrest [Fatal]
  - Hyperkalaemia [Unknown]
  - Ventricular extrasystoles [Recovered/Resolved]
  - Ventricular tachycardia [Recovered/Resolved]
